FAERS Safety Report 5426127-3 (Version None)
Quarter: 2007Q3

REPORT INFORMATION
  Report Type: 
  Country: None (occurrence: None)
  Receive Date: 20070823
  Receipt Date: 20070808
  Transmission Date: 20080115
  Serious: Yes (Life-Threatening, Hospitalization)
  Sender: FDA-Public Use
  Company Number: 017008

PATIENT
  Age: 19 Year
  Sex: Male

DRUGS (3)
  1. CLARAVIS [Suspect]
     Indication: ACNE CYSTIC
     Dosage: 40 MG, QD, ORAL, 40 MG, BID, ORAL
     Route: 048
     Dates: start: 20070608, end: 20070708
  2. CLARAVIS [Suspect]
     Indication: ACNE CYSTIC
     Dosage: 40 MG, QD, ORAL, 40 MG, BID, ORAL
     Route: 048
     Dates: start: 20070709, end: 20070804
  3. HYDROCODONE BITARTRATE [Suspect]
     Dosage: ORAL
     Route: 048
     Dates: start: 20070804, end: 20070804

REACTIONS (9)
  - AGITATION [None]
  - ALCOHOLISM [None]
  - FEELING ABNORMAL [None]
  - MOOD ALTERED [None]
  - MULTIPLE DRUG OVERDOSE INTENTIONAL [None]
  - PHYSICAL ASSAULT [None]
  - SUICIDE ATTEMPT [None]
  - VERBAL ABUSE [None]
  - VICTIM OF CRIME [None]
